FAERS Safety Report 23132892 (Version 1)
Quarter: 2023Q4

REPORT INFORMATION
  Report Type: Report from Study
  Country: BR (occurrence: BR)
  Receive Date: 20231101
  Receipt Date: 20231101
  Transmission Date: 20240109
  Serious: Yes (Other)
  Sender: FDA-Public Use
  Company Number: BR-002147023-NVSC2023BR231236

PATIENT
  Sex: Male

DRUGS (3)
  1. SECUKINUMAB [Suspect]
     Active Substance: SECUKINUMAB
     Indication: Psoriasis
     Dosage: 2 DOSAGE FORM, QW (TOOK 10 VACCINES FOR 5 WEEKS, EVERY WEEK TOOK 2 AT A TIME)
     Route: 065
     Dates: start: 20230303
  2. SECUKINUMAB [Suspect]
     Active Substance: SECUKINUMAB
     Dosage: 2 DOSAGE FORM, QMO (NOW CONFIRMED DOING 2 EACH MONTH)
     Route: 065
  3. SECUKINUMAB [Suspect]
     Active Substance: SECUKINUMAB
     Dosage: UNK
     Route: 065
     Dates: start: 20230930

REACTIONS (6)
  - Diverticulitis [Unknown]
  - Malaise [Unknown]
  - Gastrointestinal disorder [Unknown]
  - Emotional disorder [Unknown]
  - Intervertebral disc protrusion [Unknown]
  - Scab [Unknown]
